FAERS Safety Report 8776014 (Version 2)
Quarter: 2012Q4

REPORT INFORMATION
  Report Type: 
  Country: US (occurrence: US)
  Receive Date: 20120910
  Receipt Date: 20121001
  Transmission Date: 20130627
  Serious: Yes (Hospitalization)
  Sender: FDA-Public Use
  Company Number: US-ACTELION-A-US2012-70871

PATIENT
  Age: 49 Year
  Sex: Female

DRUGS (4)
  1. TRACLEER [Suspect]
     Indication: PULMONARY ARTERIAL HYPERTENSION
     Dosage: UNK
     Route: 048
  2. SILDENAFIL [Concomitant]
  3. ASPIRIN [Concomitant]
  4. LASIX [Concomitant]

REACTIONS (5)
  - Intestinal obstruction [Unknown]
  - Colonoscopy [Unknown]
  - Drug dose omission [Unknown]
  - Colostomy [Unknown]
  - Dyspnoea exertional [Unknown]
